FAERS Safety Report 23644856 (Version 1)
Quarter: 2024Q1

REPORT INFORMATION
  Report Type: Spontaneous
  Country: CA (occurrence: CA)
  Receive Date: 20240318
  Receipt Date: 20240318
  Transmission Date: 20240409
  Serious: Yes (Hospitalization, Other)
  Sender: FDA-Public Use
  Company Number: CA-SANDOZ-SDZ2024CA028523

PATIENT
  Sex: Male

DRUGS (2)
  1. TACROLIMUS [Suspect]
     Active Substance: TACROLIMUS
     Indication: Lung transplant
     Dosage: UNK
     Route: 065
  2. MYCOPHENOLATE MOFETIL [Concomitant]
     Active Substance: MYCOPHENOLATE MOFETIL
     Indication: Lung transplant
     Dosage: UNK
     Route: 065

REACTIONS (11)
  - Pneumonia pseudomonal [Unknown]
  - Coronavirus pneumonia [Unknown]
  - Enterobacter pneumonia [Unknown]
  - Mycobacterium avium complex infection [Unknown]
  - Norovirus infection [Unknown]
  - Off label use [Unknown]
  - Pneumonia [Unknown]
  - Pneumonia haemophilus [Unknown]
  - Pneumonia staphylococcal [Unknown]
  - Renal injury [Unknown]
  - Rhinovirus infection [Unknown]
